FAERS Safety Report 9995330 (Version 2)
Quarter: 2014Q1

REPORT INFORMATION
  Report Type: Spontaneous
  Country: GB (occurrence: GB)
  Receive Date: 20140311
  Receipt Date: 20140324
  Transmission Date: 20141002
  Serious: Yes (Other)
  Sender: FDA-Public Use
  Company Number: GB-MYLANLABS-2014S1004606

PATIENT
  Sex: Female

DRUGS (10)
  1. DIAZEPAM [Suspect]
  2. IBUPROFEN [Suspect]
  3. OMEPRAZOLE [Suspect]
     Route: 048
  4. DEXAMETHASONE [Suspect]
  5. LORAZEPAM [Suspect]
  6. METOCLOPRAMIDE [Suspect]
  7. MULTIVITAMIN [Suspect]
  8. PARACETAMOL [Suspect]
  9. PREDNISOLONE [Suspect]
  10. ZOMIG [Suspect]
     Indication: MIGRAINE

REACTIONS (2)
  - Drug interaction [Unknown]
  - Breast cancer [Unknown]
